FAERS Safety Report 9935141 (Version 1)
Quarter: 2014Q1

REPORT INFORMATION
  Report Type: Spontaneous
  Country: ZA (occurrence: ZA)
  Receive Date: 20140228
  Receipt Date: 20140228
  Transmission Date: 20141002
  Serious: Yes (Other)
  Sender: FDA-Public Use
  Company Number: ZA-PFIZER INC-2014054790

PATIENT
  Sex: Female

DRUGS (3)
  1. LYRICA [Suspect]
     Indication: AFFECTIVE DISORDER
     Dosage: 100 MG, 2X/DAY (BD)
     Route: 048
  2. SERTA [Concomitant]
     Dosage: UNK
  3. ZOLPIDEM [Concomitant]
     Dosage: UNK

REACTIONS (3)
  - Off label use [Unknown]
  - Dizziness [Unknown]
  - Road traffic accident [Unknown]
